FAERS Safety Report 8485731-9 (Version None)
Quarter: 2012Q3

REPORT INFORMATION
  Report Type: 
  Country: None (occurrence: None)
  Receive Date: 20120703
  Receipt Date: 20120626
  Transmission Date: 20120928
  Serious: Yes (Hospitalization)
  Sender: FDA-Public Use
  Company Number: FR-B.I. PHARMACEUTICALS,INC./RIDGEFIELD-2012-FF-00807FF

PATIENT
  Age: 71 Year
  Sex: Male
  Weight: 80 kg

DRUGS (6)
  1. VALSARTAN [Concomitant]
     Dosage: 160 MG
  2. ATORVASTATIN [Concomitant]
     Dosage: 40 MG
  3. BISOPROLOL FUMARATE [Concomitant]
     Dosage: 5 MG
  4. SPASFON [Concomitant]
  5. PRADAXA [Suspect]
     Indication: ATRIAL FIBRILLATION
     Dosage: 220 MG
     Route: 048
     Dates: end: 20120531
  6. NEXIUM [Concomitant]
     Dosage: 20 MG

REACTIONS (1)
  - ARTERIAL THROMBOSIS LIMB [None]
